FAERS Safety Report 8540748-0 (Version None)
Quarter: 2012Q3

REPORT INFORMATION
  Report Type: 
  Country: None (occurrence: None)
  Receive Date: 20120726
  Receipt Date: 20120420
  Transmission Date: 20120928
  Serious: No
  Sender: FDA-Public Use
  Company Number: US-MYLANLABS-2012S1008221

PATIENT
  Age: 75 Year
  Sex: Female

DRUGS (1)
  1. CLONIDINE [Suspect]
     Indication: BLOOD PRESSURE INCREASED
     Dosage: USES SAME PATCH FOR ONE WEEK CHANGING THE PATCH EVERY DAY TO A DIFFERENT SITE
     Route: 062
     Dates: start: 20100101

REACTIONS (3)
  - WRONG TECHNIQUE IN DRUG USAGE PROCESS [None]
  - APPLICATION SITE PRURITUS [None]
  - APPLICATION SITE DISCOLOURATION [None]
